FAERS Safety Report 6030113-2 (Version None)
Quarter: 2009Q1

REPORT INFORMATION
  Report Type: 
  Country: None (occurrence: None)
  Receive Date: 20090107
  Receipt Date: 20090102
  Transmission Date: 20090719
  Serious: Yes (Disabling, Other)
  Sender: FDA-Public Use
  Company Number: ES-BRISTOL-MYERS SQUIBB COMPANY-14449920

PATIENT
  Age: 37 Year
  Sex: Male

DRUGS (4)
  1. DASATINIB [Suspect]
     Indication: CHRONIC MYELOID LEUKAEMIA
     Dosage: INTERRUPTED ON 17-DEC-2008
     Route: 048
     Dates: start: 20080922
  2. ALLOPURINOL [Concomitant]
     Dates: start: 20080922, end: 20081006
  3. DARBEPOETIN ALFA [Concomitant]
     Dates: start: 20080922, end: 20081020
  4. HYDROXYUREA [Concomitant]
     Dates: start: 20080908, end: 20080921

REACTIONS (1)
  - OPTIC NEURITIS [None]
